FAERS Safety Report 23768839 (Version 1)
Quarter: 2024Q2

REPORT INFORMATION
  Report Type: Spontaneous
  Country: US (occurrence: None)
  Receive Date: 20240420
  Receipt Date: 20240420
  Transmission Date: 20240715
  Serious: Yes (Hospitalization)
  Sender: FDA-Public Use
  Company Number: None

PATIENT
  Age: 62 Year
  Sex: Male
  Weight: 122 kg

DRUGS (1)
  1. SEMAGLUTIDE [Suspect]
     Active Substance: SEMAGLUTIDE
     Indication: Diabetes mellitus
     Dosage: FREQUENCY : AS DIRECTED;?
     Route: 058
     Dates: start: 20230307, end: 20230326

REACTIONS (4)
  - Gastrooesophageal reflux disease [None]
  - Wrong product administered [None]
  - Sepsis [None]
  - Cellulitis [None]

NARRATIVE: CASE EVENT DATE: 20230307
